FAERS Safety Report 5005880-7 (Version None)
Quarter: 2006Q2

REPORT INFORMATION
  Report Type: 
  Country: None (occurrence: None)
  Receive Date: 20060515
  Receipt Date: 20060323
  Transmission Date: 20061013
  Serious: No
  Sender: FDA-Public Use
  Company Number: 34337

PATIENT
  Sex: Male

DRUGS (1)
  1. TRIMETHOPRIM SULFATE/POLYMYXIN B SULFATE SOLUTION [Suspect]
     Indication: PROPHYLAXIS

REACTIONS (2)
  - EYE DISCHARGE [None]
  - OCULAR HYPERAEMIA [None]
